FAERS Safety Report 8517814 (Version 5)
Quarter: 2015Q1

REPORT INFORMATION
  Report Type: Spontaneous
  Country: US (occurrence: US)
  Receive Date: 20120417
  Receipt Date: 20150210
  Transmission Date: 20150721
  Serious: Yes (Hospitalization)
  Sender: FDA-Public Use
  Company Number: US-ASTRAZENECA-2011SE18039

PATIENT
  Age: 18145 Day
  Sex: Female
  Weight: 86.2 kg

DRUGS (2)
  1. NEXIUM [Suspect]
     Active Substance: ESOMEPRAZOLE MAGNESIUM
     Indication: DYSPEPSIA
     Route: 048
     Dates: start: 2005, end: 20141231
  2. NEXIUM [Suspect]
     Active Substance: ESOMEPRAZOLE MAGNESIUM
     Indication: GASTROOESOPHAGEAL REFLUX DISEASE
     Route: 048
     Dates: start: 2005, end: 20141231

REACTIONS (10)
  - Abdominal distension [Unknown]
  - Regurgitation [Unknown]
  - Dyspepsia [Unknown]
  - Ulcer [Unknown]
  - Gastrooesophageal reflux disease [Unknown]
  - Hyperchlorhydria [Unknown]
  - Sleep disorder due to a general medical condition [Unknown]
  - Drug dose omission [Not Recovered/Not Resolved]
  - Dyspnoea [Unknown]
  - Malaise [Unknown]
